FAERS Safety Report 13919408 (Version 2)
Quarter: 2017Q3

REPORT INFORMATION
  Report Type: Other
  Country: NL (occurrence: NL)
  Receive Date: 20170830
  Receipt Date: 20170918
  Transmission Date: 20171127
  Serious: Yes (Other)
  Sender: FDA-Public Use
  Company Number: NL-ASTELLAS-2017US033927

PATIENT
  Sex: Male

DRUGS (15)
  1. CALCIUMCARB/COLECALC KAUWTB 2,5G/880IE (1000MG CA) [Concomitant]
     Dosage: 1DD1
     Route: 048
  2. SPIRIVA INHALPDR 18MCG [Concomitant]
     Dosage: 1 INHALATIE PER DAG
     Route: 055
  3. ADVAGRAF [Suspect]
     Active Substance: TACROLIMUS
     Indication: TRANSPLANT REJECTION
  4. QVAR [Concomitant]
     Active Substance: BECLOMETHASONE DIPROPIONATE
     Dosage: 2 INHALATIES PER DAG
     Route: 055
  5. ZUTECTRA INJVLST 500IE/ML WWSP 1ML [Concomitant]
     Dosage: 1 X PER 4 WEKEN
     Route: 058
  6. ADVAGRAF [Suspect]
     Active Substance: TACROLIMUS
     Indication: PROPHYLAXIS
     Dosage: 1 DF, ONCE DAILY (DECREASING IN STRENGHT FOR TWO YEARS FROM 18 MG TO NOW 4 MG PER DAY)
     Route: 048
     Dates: start: 20150602
  7. ZUTECTRA [Concomitant]
     Indication: PRODUCT USED FOR UNKNOWN INDICATION
     Dosage: 1 DF, EVERY 4 WEEKS (INJVLST 500IE/ML WWSP 1ML)
     Route: 058
  8. ADVAGRAF [Suspect]
     Active Substance: TACROLIMUS
     Indication: TRANSPLANT REJECTION
  9. CALCIUM CARBONATE W/COLECALCIFEROL [Concomitant]
     Active Substance: CALCIUM CARBONATE\CHOLECALCIFEROL
     Indication: PRODUCT USED FOR UNKNOWN INDICATION
     Dosage: 1 DF, ONCE DAILY (2,5G/880IE (1000 MG CA))
     Route: 048
  10. QVAR [Concomitant]
     Active Substance: BECLOMETHASONE DIPROPIONATE
     Indication: PRODUCT USED FOR UNKNOWN INDICATION
     Dosage: 1 DF, TWICE DAILY (2 INHALATIES PER DAG) (100MCG/DO SPBS 200DO)
     Route: 055
  11. LOSARTAN TABLET 50MG [Concomitant]
     Dosage: 2DD1
     Route: 048
  12. SPIRIVA [Concomitant]
     Active Substance: TIOTROPIUM BROMIDE MONOHYDRATE
     Indication: PRODUCT USED FOR UNKNOWN INDICATION
     Dosage: 1 DF, ONCE DAILY (1 INHALATIE PER DAG)
     Route: 055
  13. VIREAD [Suspect]
     Active Substance: TENOFOVIR DISOPROXIL FUMARATE
     Indication: HEPATITIS B
     Route: 048
     Dates: start: 20150602
  14. ADVAGRAF [Suspect]
     Active Substance: TACROLIMUS
     Indication: PROPHYLAXIS
     Dosage: 1 DF, ONCE DAILY (DECREASING IN STRENGTH
     Route: 048
     Dates: start: 20150602
  15. LOSARTAN. [Concomitant]
     Active Substance: LOSARTAN
     Indication: PRODUCT USED FOR UNKNOWN INDICATION
     Route: 048

REACTIONS (3)
  - Weight decreased [Unknown]
  - Muscle atrophy [Recovered/Resolved with Sequelae]
  - Asthenia [Recovered/Resolved with Sequelae]

NARRATIVE: CASE EVENT DATE: 2016
